FAERS Safety Report 24742305 (Version 1)
Quarter: 2024Q4

REPORT INFORMATION
  Report Type: Spontaneous
  Country: US (occurrence: US)
  Receive Date: 20241217
  Receipt Date: 20241217
  Transmission Date: 20250114
  Serious: Yes (Hospitalization, Other)
  Sender: AUROBINDO
  Company Number: US-AUROBINDO-AUR-APL-2024-060865

PATIENT
  Sex: Male

DRUGS (14)
  1. LEVOFLOXACIN [Suspect]
     Active Substance: LEVOFLOXACIN
     Indication: Infection
     Dosage: UNK
     Route: 065
  2. DOXYCYCLINE [Suspect]
     Active Substance: DOXYCYCLINE
     Indication: Infection
     Dosage: UNK
     Route: 065
  3. AMOXICILLIN\CLAVULANIC ACID [Suspect]
     Active Substance: AMOXICILLIN\CLAVULANIC ACID
     Indication: Infection
     Dosage: UNK
     Route: 065
  4. IMIPENEM [Concomitant]
     Active Substance: IMIPENEM
     Indication: Infection
  5. AZITHROMYCIN [Concomitant]
     Active Substance: AZITHROMYCIN
     Indication: Infection
     Dosage: UNK
     Route: 065
  6. ERAVACYCLINE [Concomitant]
     Active Substance: ERAVACYCLINE
     Indication: Infection
     Dosage: UNK
     Route: 065
  7. LINEZOLID [Concomitant]
     Active Substance: LINEZOLID
     Indication: Infection
     Dosage: UNK
     Route: 065
  8. AMIKACIN [Concomitant]
     Active Substance: AMIKACIN
     Indication: Infection
     Dosage: UNK
     Route: 065
  9. TEDIZOLID [Concomitant]
     Active Substance: TEDIZOLID
     Indication: Infection
     Dosage: UNK
     Route: 065
  10. CLOFAZIMINE [Concomitant]
     Active Substance: CLOFAZIMINE
     Indication: Infection
     Dosage: UNK
     Route: 065
  11. OMADACYCLINE [Concomitant]
     Active Substance: OMADACYCLINE
     Indication: Infection
     Dosage: UNK
     Route: 065
  12. BEDAQUILINE [Concomitant]
     Active Substance: BEDAQUILINE
     Indication: Infection
     Dosage: UNK
     Route: 065
  13. AVIBACTAM SODIUM\CEFTAZIDIME [Concomitant]
     Active Substance: AVIBACTAM SODIUM\CEFTAZIDIME
     Indication: Infection
     Dosage: UNK
     Route: 065
  14. MEROPENEM [Concomitant]
     Active Substance: MEROPENEM
     Indication: Infection
     Dosage: UNK
     Route: 065

REACTIONS (1)
  - Treatment failure [Unknown]
